FAERS Safety Report 16961209 (Version 2)
Quarter: 2019Q4

REPORT INFORMATION
  Report Type: Spontaneous
  Country: ZA (occurrence: ZA)
  Receive Date: 20191025
  Receipt Date: 20191203
  Transmission Date: 20200122
  Serious: Yes (Other)
  Sender: FDA-Public Use
  Company Number: NVSC2019ZA015262

PATIENT
  Age: 76 Year
  Sex: Female
  Weight: 74 kg

DRUGS (4)
  1. ATIVAN [Concomitant]
     Active Substance: LORAZEPAM
     Indication: PRODUCT USED FOR UNKNOWN INDICATION
     Dosage: 1 MG
     Route: 048
  2. INDERAL [Concomitant]
     Active Substance: PROPRANOLOL HYDROCHLORIDE
     Indication: PRODUCT USED FOR UNKNOWN INDICATION
     Dosage: 40 MG, BID (1-2 TIMES)
     Route: 065
  3. VATIVIO [Suspect]
     Active Substance: IMATINIB MESYLATE
     Indication: GASTROINTESTINAL STROMAL TUMOUR
     Dosage: 400 MG
     Route: 048
     Dates: start: 20190813, end: 20190823
  4. NEXIUM [Concomitant]
     Active Substance: ESOMEPRAZOLE MAGNESIUM
     Indication: GASTRIC ULCER
     Dosage: 40 MG, QD
     Route: 048

REACTIONS (4)
  - Periorbital oedema [Unknown]
  - Abdominal discomfort [Recovered/Resolved]
  - Second primary malignancy [Unknown]
  - Bladder cancer [Unknown]

NARRATIVE: CASE EVENT DATE: 20190815
